FAERS Safety Report 8515719-0 (Version None)
Quarter: 2012Q3

REPORT INFORMATION
  Report Type: 
  Country: None (occurrence: None)
  Receive Date: 20120717
  Receipt Date: 20120712
  Transmission Date: 20120928
  Serious: Yes (Other)
  Sender: FDA-Public Use
  Company Number: PHHY2012BR051630

PATIENT
  Sex: Male

DRUGS (8)
  1. SOMALGIN CARDIO [Concomitant]
     Dosage: 1 TABLET A DAY
     Route: 048
  2. ALPRAZOLAM [Concomitant]
     Dosage: 1 TABLET A DAY
  3. DIOVAN [Suspect]
     Dosage: 1 DF A DAY
     Route: 048
  4. OMEPRAZOLE [Concomitant]
     Dosage: 1 TABLET A DAY
     Route: 048
  5. INDAPAMIDE [Concomitant]
     Dosage: 1 DF, QOD
     Route: 048
  6. CRESTOR [Concomitant]
     Indication: BLOOD CHOLESTEROL
     Dosage: 1 TABELT A DAY
     Route: 048
  7. DIOVAN [Suspect]
     Indication: BLOOD PRESSURE INADEQUATELY CONTROLLED
     Dosage: 2 DF A DAY
     Route: 048
  8. PROPAFENONE HCL [Concomitant]
     Dosage: HALF TABLET A DAY
     Route: 048

REACTIONS (2)
  - CEREBROVASCULAR ACCIDENT [None]
  - TONGUE DISORDER [None]
